FAERS Safety Report 19037492 (Version 1)
Quarter: 2021Q1

REPORT INFORMATION
  Report Type: Spontaneous
  Country: US (occurrence: US)
  Receive Date: 20210322
  Receipt Date: 20210322
  Transmission Date: 20210420
  Serious: Yes (Other)
  Sender: FDA-Public Use
  Company Number: US-PHARMING-PHAUS2021000146

PATIENT

DRUGS (1)
  1. RUCONEST [Suspect]
     Active Substance: HUMAN C1-ESTERASE INHIBITOR
     Indication: HEREDITARY ANGIOEDEMA
     Dosage: 4200 IU, DAILY AS NEEDED
     Route: 042
     Dates: start: 201408

REACTIONS (5)
  - Palpitations [Unknown]
  - Headache [Unknown]
  - Facial paralysis [Unknown]
  - Weight decreased [Unknown]
  - Skin irritation [Unknown]
